FAERS Safety Report 23149901 (Version 11)
Quarter: 2024Q4

REPORT INFORMATION
  Report Type: Report from Study
  Country: US (occurrence: US)
  Receive Date: 20231106
  Receipt Date: 20241114
  Transmission Date: 20250115
  Serious: Yes (Hospitalization, Other)
  Sender: SANDOZ
  Company Number: US-002147023-NVSC2022US281463

PATIENT
  Age: 64 Year
  Sex: Female

DRUGS (15)
  1. TREPROSTINIL [Suspect]
     Active Substance: TREPROSTINIL
     Dosage: 32 ?G QD
     Route: 055
  2. TREPROSTINIL [Suspect]
     Active Substance: TREPROSTINIL
     Dosage: 28 NG/KG/MIN
     Route: 042
     Dates: start: 202102
  3. TREPROSTINIL [Suspect]
     Active Substance: TREPROSTINIL
     Indication: Pulmonary arterial hypertension
     Dosage: 28 NG/KG/MIN, CONT
     Route: 042
     Dates: start: 20210222
  4. TREPROSTINIL [Suspect]
     Active Substance: TREPROSTINIL
     Dosage: 28 NG/KG/MIN, CONT (STRENGTH: 2.5 MG/ML)
     Route: 042
     Dates: start: 202104
  5. TREPROSTINIL [Suspect]
     Active Substance: TREPROSTINIL
     Dosage: 28 NG/KG/MIN, CONTINUING
     Route: 041
     Dates: start: 202306
  6. TREPROSTINIL [Suspect]
     Active Substance: TREPROSTINIL
     Dosage: 28NKM
     Route: 042
     Dates: start: 202306
  7. TREPROSTINIL [Suspect]
     Active Substance: TREPROSTINIL
     Dosage: UNK
     Route: 055
     Dates: start: 202402
  8. TREPROSTINIL [Suspect]
     Active Substance: TREPROSTINIL
     Dosage: UNK, CONTINUING
     Route: 041
     Dates: start: 202306
  9. TYVASO DPI [Suspect]
     Active Substance: TREPROSTINIL
     Dosage: 16 UG
     Route: 055
  10. TYVASO DPI [Suspect]
     Active Substance: TREPROSTINIL
     Indication: Pulmonary arterial hypertension
     Dosage: 32 UG, QID
     Route: 055
  11. TYVASO DPI [Suspect]
     Active Substance: TREPROSTINIL
     Dosage: 32 UG
     Route: 055
  12. TYVASO DPI [Suspect]
     Active Substance: TREPROSTINIL
     Dosage: 48 UG
     Route: 055
  13. TYVASO DPI [Suspect]
     Active Substance: TREPROSTINIL
     Dosage: UNK
     Route: 055
  14. TYVASO DPI [Suspect]
     Active Substance: TREPROSTINIL
     Dosage: UNK
     Route: 055
  15. TYVASO DPI [Suspect]
     Active Substance: TREPROSTINIL
     Indication: Product used for unknown indication
     Dosage: UNK
     Route: 065

REACTIONS (12)
  - Cerebrovascular accident [Unknown]
  - Hypoaesthesia [Unknown]
  - Hemiparesis [Unknown]
  - Peripheral swelling [Unknown]
  - Chronic obstructive pulmonary disease [Unknown]
  - Chest pain [Unknown]
  - Coronavirus infection [Unknown]
  - Dyspnoea [Unknown]
  - COVID-19 [Unknown]
  - Condition aggravated [Unknown]
  - Influenza [Unknown]
  - Feeling abnormal [Unknown]

NARRATIVE: CASE EVENT DATE: 20240308
